FAERS Safety Report 8580037 (Version 4)
Quarter: 2012Q4

REPORT INFORMATION
  Report Type: 
  Country: CA (occurrence: CA)
  Receive Date: 20120525
  Receipt Date: 20121001
  Transmission Date: 20130627
  Serious: Yes (Hospitalization, Other)
  Sender: FDA-Public Use
  Company Number: CA-JNJFOC-20120513494

PATIENT
  Age: 48 Year
  Sex: Female
  Weight: 60 kg

DRUGS (11)
  1. REMICADE [Suspect]
     Indication: RHEUMATOID ARTHRITIS
     Dosage: conflictingly reported as infusion # 107
     Route: 042
     Dates: start: 20120614
  2. REMICADE [Suspect]
     Indication: RHEUMATOID ARTHRITIS
     Dosage: 107th infusion
     Route: 042
     Dates: start: 20120513
  3. REMICADE [Suspect]
     Indication: RHEUMATOID ARTHRITIS
     Route: 042
     Dates: start: 2007
  4. REMICADE [Suspect]
     Indication: RHEUMATOID ARTHRITIS
     Route: 042
     Dates: start: 20051012
  5. REMICADE [Suspect]
     Indication: RHEUMATOID ARTHRITIS
     Route: 042
     Dates: start: 2002
  6. METHOTREXATE [Concomitant]
     Indication: RHEUMATOID ARTHRITIS
     Route: 048
  7. HYDROXYCHLOROQUINE [Concomitant]
     Route: 065
  8. FLOVENT [Concomitant]
     Indication: ASTHMA
     Route: 065
  9. VENTOLIN [Concomitant]
     Indication: ASTHMA
     Route: 065
  10. AMITRIPTYLINE [Concomitant]
     Indication: FIBROMYALGIA
     Route: 065
  11. SULFASALAZINE [Concomitant]
     Indication: RHEUMATOID ARTHRITIS
     Route: 048

REACTIONS (4)
  - Cholelithiasis [Recovered/Resolved]
  - Cholecystitis [Unknown]
  - Enzyme level increased [Unknown]
  - Asthma [Not Recovered/Not Resolved]
